FAERS Safety Report 18960349 (Version 2)
Quarter: 2021Q3

REPORT INFORMATION
  Report Type: Spontaneous
  Country: MX (occurrence: MX)
  Receive Date: 20210302
  Receipt Date: 20210720
  Transmission Date: 20211014
  Serious: No
  Sender: FDA-Public Use
  Company Number: MX-ASTRAZENECA-2021A034914

PATIENT
  Age: 2 Month
  Sex: Female
  Weight: 3 kg

DRUGS (6)
  1. UNIVAL [Concomitant]
  2. RIOPAN [Concomitant]
     Dosage: CRISIS OR FOR 5 DAYS
  3. MULTIVITAMIN [Concomitant]
     Active Substance: VITAMINS
  4. UNAMOL [Concomitant]
     Dosage: 1 MG / 1 ML 0.2?0.4 ML EVERY 8 HOURS
  5. NEXIUM [Suspect]
     Active Substance: ESOMEPRAZOLE MAGNESIUM
     Indication: GASTROOESOPHAGEAL REFLUX DISEASE
     Dosage: 2.5 MG 1 SACHETS ONCE A NIGHT
     Route: 048
     Dates: start: 202011
  6. NEXIUM [Suspect]
     Active Substance: ESOMEPRAZOLE MAGNESIUM
     Indication: GASTROOESOPHAGEAL REFLUX DISEASE
     Dosage: 10 MG AND DISSOLVES THE ENVELOPE IN 5 ML AND GIVES HALF A PATIENT AND HALF TO THE OTHER PATIENT
     Route: 048
     Dates: start: 202101, end: 202105

REACTIONS (7)
  - Constipation [Recovered/Resolved]
  - Product use issue [Unknown]
  - Product contamination [Unknown]
  - Off label use [Unknown]
  - Abnormal faeces [Recovered/Resolved]
  - Faeces discoloured [Recovered/Resolved]
  - Product shape issue [Not Recovered/Not Resolved]

NARRATIVE: CASE EVENT DATE: 20210124
